FAERS Safety Report 4749620-5 (Version None)
Quarter: 2005Q3

REPORT INFORMATION
  Report Type: 
  Country: None (occurrence: None)
  Receive Date: 20050822
  Receipt Date: 20050711
  Transmission Date: 20060218
  Serious: Yes (Hospitalization, Disabling)
  Sender: FDA-Public Use
  Company Number: US-MERCK-0507USA01525

PATIENT
  Age: 52 Year
  Sex: Female
  Weight: 132 kg

DRUGS (4)
  1. VIOXX [Suspect]
     Indication: JOINT INJURY
     Route: 048
     Dates: start: 20000101, end: 20030701
  2. PROZAC [Concomitant]
     Indication: DEPRESSION
     Route: 065
  3. CALCIUM (UNSPECIFIED) [Concomitant]
     Route: 065
  4. HORMONES (UNSPECIFIED) [Concomitant]
     Route: 065

REACTIONS (6)
  - DEPRESSION [None]
  - GALLBLADDER DISORDER [None]
  - HERNIA [None]
  - JOINT INJURY [None]
  - MYOCARDIAL INFARCTION [None]
  - THROMBOSIS [None]
